FAERS Safety Report 8232312-8 (Version None)
Quarter: 2012Q1

REPORT INFORMATION
  Report Type: 
  Country: None (occurrence: None)
  Receive Date: 20120320
  Receipt Date: 20120227
  Transmission Date: 20120608
  Serious: Yes (Hospitalization)
  Sender: FDA-Public Use
  Company Number: 935423

PATIENT
  Age: 76 Year
  Sex: Female
  Weight: 59.8748 kg

DRUGS (3)
  1. GLUCOPHAGE [Concomitant]
  2. VERAPAMIL [Concomitant]
  3. MONISTAT 3 [Suspect]
     Indication: FUNGAL INFECTION
     Dosage: 1 APPLICATION DAILY X 3 DAYS
     Dates: start: 20120120, end: 20120122

REACTIONS (7)
  - APPLICATION SITE PAIN [None]
  - THERMAL BURN [None]
  - RASH [None]
  - GENITAL RASH [None]
  - PRURITUS [None]
  - STAPHYLOCOCCAL INFECTION [None]
  - APPLICATION SITE IRRITATION [None]
